FAERS Safety Report 19803431 (Version 1)
Quarter: 2021Q3

REPORT INFORMATION
  Report Type: Report from Study
  Country: HU (occurrence: HU)
  Receive Date: 20210908
  Receipt Date: 20210908
  Transmission Date: 20211014
  Serious: Yes (Other)
  Sender: FDA-Public Use
  Company Number: HU-MYLANLABS-2021M1059267

PATIENT
  Age: 1 Day
  Weight: 1.9 kg

DRUGS (2)
  1. PROPAFENONE. [Suspect]
     Active Substance: PROPAFENONE
     Indication: SUPRAVENTRICULAR TACHYCARDIA
     Dosage: 2 MILLIGRAM/KILOGRAM,LOADING DOSE
     Route: 042
  2. PROPAFENONE. [Suspect]
     Active Substance: PROPAFENONE
     Dosage: 8 MICROGRAM/KILOGRAM, QMINUTE,MAINTENANCE DOSE
     Route: 042

REACTIONS (3)
  - Multiple organ dysfunction syndrome [Unknown]
  - Arrhythmia [Unknown]
  - Electrocardiogram QRS complex prolonged [Unknown]
